FAERS Safety Report 5529737-8 (Version None)
Quarter: 2007Q4

REPORT INFORMATION
  Report Type: 
  Country: None (occurrence: None)
  Receive Date: 20071129
  Receipt Date: 20071119
  Transmission Date: 20080405
  Serious: Yes (Other)
  Sender: FDA-Public Use
  Company Number: ZA-ABBOTT-07P-143-0425105-00

PATIENT
  Sex: Male

DRUGS (2)
  1. EPILIM [Suspect]
     Indication: EPILEPSY
     Route: 048
  2. PHENOBARBITAL SODIUM 100MG CAP [Concomitant]
     Indication: EPILEPSY
     Route: 048

REACTIONS (2)
  - EPILEPSY [None]
  - TREATMENT NONCOMPLIANCE [None]
